FAERS Safety Report 5126422-1 (Version None)
Quarter: 2006Q4

REPORT INFORMATION
  Report Type: 
  Country: None (occurrence: None)
  Receive Date: 20061010
  Receipt Date: 20061002
  Transmission Date: 20070319
  Serious: Yes (Other)
  Sender: FDA-Public Use
  Company Number: 2006118788

PATIENT
  Age: 54 Year
  Sex: Female
  Weight: 45.3597 kg

DRUGS (1)
  1. BENGAY VANISHING (MENTHOL) [Suspect]
     Indication: MUSCULOSKELETAL PAIN
     Dosage: A SMALL AMOUNT ONCE, TOPICAL
     Route: 061
     Dates: start: 20060930, end: 20060930

REACTIONS (3)
  - ABDOMINAL PAIN [None]
  - EYE SWELLING [None]
  - URTICARIA [None]
